FAERS Safety Report 8484548-9 (Version None)
Quarter: 2012Q3

REPORT INFORMATION
  Report Type: 
  Country: None (occurrence: None)
  Receive Date: 20120703
  Receipt Date: 20120627
  Transmission Date: 20120928
  Serious: Yes (Death)
  Sender: FDA-Public Use
  Company Number: NL-PFIZER INC-2012155312

PATIENT
  Age: 46 Year
  Sex: Female

DRUGS (4)
  1. CYMBALTA [Suspect]
     Dosage: 30 MG, UNK
     Dates: start: 20120101
  2. CYMBALTA [Suspect]
     Indication: DEPRESSION
     Dosage: 15 MG, UNK
     Dates: start: 20120323, end: 20120101
  3. ZYPREXA [Concomitant]
     Dosage: 2.5 MG, 2X/DAY
     Dates: start: 20111107
  4. VENLAFAXINE HCL [Suspect]
     Indication: DEPRESSION
     Dosage: 37.5 MG, UNK
     Dates: start: 20120315, end: 20120323

REACTIONS (1)
  - COMPLETED SUICIDE [None]
